FAERS Safety Report 15284630 (Version 1)
Quarter: 2018Q3

REPORT INFORMATION
  Report Type: Spontaneous
  Country: US (occurrence: US)
  Receive Date: 20180816
  Receipt Date: 20180816
  Transmission Date: 20181010
  Serious: No
  Sender: FDA-Public Use
  Company Number: US-GLAXOSMITHKLINE-US2018146874

PATIENT
  Age: 73 Year
  Sex: Male

DRUGS (2)
  1. SEREVENT DISKUS [Suspect]
     Active Substance: SALMETEROL XINAFOATE
     Indication: BRONCHOSPASM
     Dosage: 1 PUFF(S), BID
     Route: 055
     Dates: start: 20180809
  2. DUTASTERIDE. [Concomitant]
     Active Substance: DUTASTERIDE

REACTIONS (1)
  - Dysuria [Unknown]

NARRATIVE: CASE EVENT DATE: 20180809
